FAERS Safety Report 7538943-2 (Version None)
Quarter: 2011Q2

REPORT INFORMATION
  Report Type: 
  Country: None (occurrence: None)
  Receive Date: 20110524
  Receipt Date: 20110406
  Transmission Date: 20111010
  Serious: No
  Sender: FDA-Public Use
  Company Number: 030781

PATIENT
  Sex: Female
  Weight: 68 kg

DRUGS (16)
  1. LANTUS [Concomitant]
  2. VITAMIN B12 /00056201/ [Concomitant]
  3. SYNTHROID [Concomitant]
  4. CIMZIA [Suspect]
     Dosage: (INDUCTION DOSE SUBCUTANEOUS), (400 MG 1X/4 WEEKS SUBCUTANEOUS)
     Route: 058
     Dates: start: 20100101, end: 20110309
  5. CIMZIA [Suspect]
     Dosage: (INDUCTION DOSE SUBCUTANEOUS), (400 MG 1X/4 WEEKS SUBCUTANEOUS)
     Route: 058
     Dates: start: 20101019
  6. OMEPRAZOLE [Concomitant]
  7. INSULIN [Concomitant]
  8. REQUIP [Concomitant]
  9. AMITRIPTYLINE HCL [Concomitant]
  10. GLUCOPHAGE [Concomitant]
  11. TEMAZEPAM [Concomitant]
  12. LOPERAMIDE [Concomitant]
  13. DOMPERIDONE [Concomitant]
  14. ENTOCORT EC [Concomitant]
  15. TOPROL-XL [Concomitant]
  16. FROVA [Concomitant]

REACTIONS (3)
  - ORAL DISCOMFORT [None]
  - LIP SWELLING [None]
  - SKIN DISCOLOURATION [None]
